FAERS Safety Report 6299877-7 (Version None)
Quarter: 2009Q3

REPORT INFORMATION
  Report Type: 
  Country: None (occurrence: None)
  Receive Date: 20090806
  Receipt Date: 20090727
  Transmission Date: 20100115
  Serious: Yes (Other)
  Sender: FDA-Public Use
  Company Number: PHHY2009DE31998

PATIENT
  Sex: Male

DRUGS (1)
  1. FORADIL [Suspect]
     Indication: BRONCHIAL DISORDER
     Dosage: 1 DF DAILY

REACTIONS (1)
  - POLYNEUROPATHY [None]
